FAERS Safety Report 20734983 (Version 1)
Quarter: 2022Q2

REPORT INFORMATION
  Report Type: Spontaneous
  Country: US (occurrence: US)
  Receive Date: 20220421
  Receipt Date: 20220421
  Transmission Date: 20220721
  Serious: Yes (Other)
  Sender: FDA-Public Use
  Company Number: US-SA-SAC20220420001723

PATIENT
  Sex: Male

DRUGS (4)
  1. ELOCTATE [Suspect]
     Active Substance: (1-743)-(1638-2332)-BLOOD-COAGULATION FACTOR VIII (SYNTHETIC HUMAN) FUSION PROTEIN WITH IMMUNOGLOBUL
     Indication: Factor VIII deficiency
     Dosage: 831 IU, PRN (748-914) AS NEEDED FOR MILD OR MODERATE BLEEDING) ONE DOSE FOR BLEED AND SECOND DOSE IN
     Route: 042
  2. ELOCTATE [Suspect]
     Active Substance: (1-743)-(1638-2332)-BLOOD-COAGULATION FACTOR VIII (SYNTHETIC HUMAN) FUSION PROTEIN WITH IMMUNOGLOBUL
     Indication: Factor VIII deficiency
     Dosage: 831 IU, PRN (748-914) AS NEEDED FOR MILD OR MODERATE BLEEDING) ONE DOSE FOR BLEED AND SECOND DOSE IN
     Route: 042
  3. ELOCTATE [Suspect]
     Active Substance: (1-743)-(1638-2332)-BLOOD-COAGULATION FACTOR VIII (SYNTHETIC HUMAN) FUSION PROTEIN WITH IMMUNOGLOBUL
     Dosage: 1662 IU, PRN (1662 UNITS; (1496-1828) AS NEEDED FOR SEVERE BLEEDING, ONE DOSE FOR BLEED AND SECOND D
     Route: 042
  4. ELOCTATE [Suspect]
     Active Substance: (1-743)-(1638-2332)-BLOOD-COAGULATION FACTOR VIII (SYNTHETIC HUMAN) FUSION PROTEIN WITH IMMUNOGLOBUL
     Dosage: 1662 IU, PRN (1662 UNITS; (1496-1828) AS NEEDED FOR SEVERE BLEEDING, ONE DOSE FOR BLEED AND SECOND D
     Route: 042

REACTIONS (1)
  - Haemorrhage [Unknown]
